FAERS Safety Report 10218403 (Version 1)
Quarter: 2014Q2

REPORT INFORMATION
  Report Type: Spontaneous
  Country: ZA (occurrence: ZA)
  Receive Date: 20140605
  Receipt Date: 20140605
  Transmission Date: 20141212
  Serious: Yes (Death)
  Sender: FDA-Public Use
  Company Number: ZA-JNJFOC-20140601969

PATIENT
  Sex: Female

DRUGS (5)
  1. REVELLEX [Suspect]
     Indication: RHEUMATOID ARTHRITIS
     Route: 042
     Dates: start: 20131129
  2. REVELLEX [Suspect]
     Indication: RHEUMATOID ARTHRITIS
     Route: 042
     Dates: start: 20080710
  3. CORTISONE [Concomitant]
     Route: 065
     Dates: start: 2012
  4. SALAZOPYRIN [Concomitant]
     Route: 065
     Dates: start: 2010
  5. COXFLAM [Concomitant]
     Route: 065
     Dates: start: 2012

REACTIONS (1)
  - Renal failure [Fatal]
